FAERS Safety Report 24882377 (Version 1)
Quarter: 2025Q1

REPORT INFORMATION
  Report Type: Spontaneous
  Country: RO (occurrence: RO)
  Receive Date: 20250124
  Receipt Date: 20250124
  Transmission Date: 20250408
  Serious: Yes (Hospitalization, Other)
  Sender: JUBILANT
  Company Number: RO-JUBILANT CADISTA PHARMACEUTICALS-2025RO000089

PATIENT
  Age: 25 Year
  Sex: Male

DRUGS (1)
  1. BUPROPION HYDROCHLORIDE [Suspect]
     Active Substance: BUPROPION HYDROCHLORIDE
     Indication: Product used for unknown indication
     Route: 065

REACTIONS (3)
  - Rhabdomyolysis [Recovered/Resolved]
  - Hepatic cytolysis [Recovered/Resolved]
  - Intentional overdose [Recovered/Resolved]
